FAERS Safety Report 22189833 (Version 3)
Quarter: 2023Q4

REPORT INFORMATION
  Report Type: Report from Study
  Country: US (occurrence: US)
  Receive Date: 20230410
  Receipt Date: 20231024
  Transmission Date: 20240110
  Serious: Yes (Other)
  Sender: FDA-Public Use
  Company Number: US-002147023-NVSC2023US078459

PATIENT
  Sex: Female

DRUGS (2)
  1. LEQVIO [Suspect]
     Active Substance: INCLISIRAN SODIUM
     Indication: Product used for unknown indication
     Dosage: 284 MG, QMO
     Route: 058
     Dates: start: 20221230
  2. LEQVIO [Suspect]
     Active Substance: INCLISIRAN SODIUM
     Dosage: 284 MG, QMO
     Route: 058
     Dates: start: 20230418

REACTIONS (5)
  - Coronary artery occlusion [Unknown]
  - Chest pain [Unknown]
  - Chest discomfort [Unknown]
  - Abdominal pain [Unknown]
  - Product dose omission issue [Unknown]
